FAERS Safety Report 24894098 (Version 2)
Quarter: 2025Q1

REPORT INFORMATION
  Report Type: Spontaneous
  Country: US (occurrence: US)
  Receive Date: 20250128
  Receipt Date: 20250207
  Transmission Date: 20250409
  Serious: Yes (Other)
  Sender: SANOFI AVENTIS
  Company Number: US-SA-2025SA025170

PATIENT
  Age: 69 Year
  Sex: Male

DRUGS (1)
  1. DUPIXENT [Suspect]
     Active Substance: DUPILUMAB
     Indication: Dermatitis atopic
     Dosage: 300 MG, QOW
     Route: 058

REACTIONS (7)
  - Atypical pneumonia [Unknown]
  - Loss of consciousness [Unknown]
  - Cough [Unknown]
  - Otitis media [Unknown]
  - Wheezing [Unknown]
  - Insomnia [Unknown]
  - Influenza [Unknown]

NARRATIVE: CASE EVENT DATE: 20250101
